FAERS Safety Report 7916148-0 (Version None)
Quarter: 2011Q4

REPORT INFORMATION
  Report Type: 
  Country: None (occurrence: None)
  Receive Date: 20111116
  Receipt Date: 20111114
  Transmission Date: 20120403
  Serious: Yes (Hospitalization)
  Sender: FDA-Public Use
  Company Number: US-BIOGENIDEC-2011BI034923

PATIENT
  Age: 53 Year
  Sex: Female

DRUGS (4)
  1. BACLOFEN [Concomitant]
  2. CELEXA [Concomitant]
  3. FLEXERIL [Concomitant]
  4. AVONEX [Suspect]
     Route: 030
     Dates: end: 20110512

REACTIONS (2)
  - NECROTISING FASCIITIS [None]
  - SEPSIS [None]
